FAERS Safety Report 24979476 (Version 1)
Quarter: 2025Q1

REPORT INFORMATION
  Report Type: Spontaneous
  Country: NL (occurrence: NL)
  Receive Date: 20250218
  Receipt Date: 20250218
  Transmission Date: 20250409
  Serious: Yes (Life-Threatening, Hospitalization, Other)
  Sender: Steriscience PTE
  Company Number: NL-STERISCIENCE B.V.-2025-ST-000244

PATIENT
  Sex: Female

DRUGS (3)
  1. BUPIVACAINE [Suspect]
     Active Substance: BUPIVACAINE
     Indication: Spinal anaesthesia
     Route: 037
  2. BUPIVACAINE [Suspect]
     Active Substance: BUPIVACAINE
     Indication: Epidural analgesia
     Route: 008
  3. SUFENTANIL [Suspect]
     Active Substance: SUFENTANIL
     Indication: Epidural analgesia
     Dosage: 8 MILLILITER, QH
     Route: 008

REACTIONS (6)
  - Apnoea [Unknown]
  - Respiratory failure [Unknown]
  - Nerve block [Unknown]
  - Condition aggravated [Unknown]
  - Maternal exposure during delivery [Unknown]
  - Off label use [Unknown]
